FAERS Safety Report 10415289 (Version 1)
Quarter: 2014Q3

REPORT INFORMATION
  Report Type: Spontaneous
  Country: US (occurrence: None)
  Receive Date: 20140826
  Receipt Date: 20140826
  Transmission Date: 20150326
  Serious: Yes (Hospitalization)
  Sender: FDA-Public Use
  Company Number: US-H14001-14-00428

PATIENT
  Age: 69 Year
  Sex: Female

DRUGS (2)
  1. FENTANYL (FENTANYL) (UNKNOWN) (FENTANYL) [Suspect]
     Active Substance: FENTANYL
     Indication: PAIN
  2. MEPERIDINE [Suspect]
     Active Substance: MEPERIDINE
     Indication: PAIN

REACTIONS (1)
  - Serotonin syndrome [None]
